FAERS Safety Report 8560319-X (Version None)
Quarter: 2012Q3

REPORT INFORMATION
  Report Type: 
  Country: None (occurrence: None)
  Receive Date: 20120802
  Receipt Date: 20120720
  Transmission Date: 20120928
  Serious: No
  Sender: FDA-Public Use
  Company Number: ES-ELI_LILLY_AND_COMPANY-ES201202008217

PATIENT
  Sex: Male
  Weight: 38 kg

DRUGS (5)
  1. STRATTERA [Suspect]
     Dosage: 25 MG, QD
     Route: 048
     Dates: start: 20110905, end: 20110911
  2. CALCIO [Concomitant]
     Indication: LACTOSE INTOLERANCE
     Dosage: UNK, PRN
     Route: 048
  3. STRATTERA [Suspect]
     Dosage: 40 MG, QD
     Route: 048
     Dates: start: 20110912
  4. STRATTERA [Suspect]
     Dosage: 18 MG, QD
     Route: 048
     Dates: start: 20110829, end: 20110904
  5. STRATTERA [Suspect]
     Indication: ATTENTION DEFICIT/HYPERACTIVITY DISORDER
     Dosage: 10 MG, QD
     Route: 048
     Dates: start: 20110822, end: 20110828

REACTIONS (4)
  - TACHYCARDIA [None]
  - SOMNOLENCE [None]
  - DYSGEUSIA [None]
  - DECREASED APPETITE [None]
